FAERS Safety Report 8963776 (Version 2)
Quarter: 2012Q4

REPORT INFORMATION
  Report Type: Report from Study
  Country: BE (occurrence: BE)
  Receive Date: 20121214
  Receipt Date: 20121220
  Transmission Date: 20130627
  Serious: Yes (Death, Hospitalization)
  Sender: FDA-Public Use
  Company Number: BE-CELGENEUS-013-21880-12120658

PATIENT
  Age: 75 Year
  Sex: Female
  Weight: 62 kg

DRUGS (6)
  1. REVLIMID [Suspect]
     Indication: ACUTE MYELOID LEUKEMIA
     Route: 048
     Dates: start: 20121113
  2. CYTARABINE [Suspect]
     Indication: ACUTE MYELOID LEUKEMIA
     Route: 041
     Dates: start: 20121113
  3. DAUNOMYCIN [Suspect]
     Indication: ACUTE MYELOID LEUKEMIA
     Route: 041
     Dates: start: 20121113
  4. MEROPENEM [Concomitant]
     Indication: FEVER
     Dosage: 3 Gram
     Route: 041
     Dates: start: 20121103
  5. MEROPENEM [Concomitant]
     Route: 041
     Dates: start: 20121130, end: 20121203
  6. VANCOMYCINE [Concomitant]
     Indication: BACTEREMIA
     Dosage: 500-2000
     Route: 041
     Dates: start: 20121124

REACTIONS (2)
  - Multi-organ failure [Fatal]
  - Hypernatraemia [Not Recovered/Not Resolved]
